FAERS Safety Report 7587236-6 (Version None)
Quarter: 2011Q3

REPORT INFORMATION
  Report Type: 
  Country: None (occurrence: None)
  Receive Date: 20110701
  Receipt Date: 20110617
  Transmission Date: 20111222
  Serious: Yes (Hospitalization)
  Sender: FDA-Public Use
  Company Number: US-GILEAD-2011-0036668

PATIENT
  Age: 48 Year
  Sex: Female

DRUGS (2)
  1. LETAIRIS [Suspect]
     Indication: TOXICITY TO VARIOUS AGENTS
  2. LETAIRIS [Suspect]
     Indication: PULMONARY HYPERTENSION
     Route: 048
     Dates: start: 20070925

REACTIONS (4)
  - HYPOTENSION [None]
  - EMOTIONAL DISORDER [None]
  - SYNCOPE [None]
  - CHEST DISCOMFORT [None]
